FAERS Safety Report 18020096 (Version 1)
Quarter: 2020Q3

REPORT INFORMATION
  Report Type: Spontaneous
  Country: US (occurrence: US)
  Receive Date: 20200714
  Receipt Date: 20200714
  Transmission Date: 20201103
  Serious: Yes (Other)
  Sender: FDA-Public Use
  Company Number: None

PATIENT
  Age: 49 Year
  Sex: Male
  Weight: 87.9 kg

DRUGS (2)
  1. HUMIRA [Suspect]
     Active Substance: ADALIMUMAB
     Indication: CROHN^S DISEASE
     Dates: start: 20200409, end: 20200702
  2. ALBUTEROL SULFATE 2.5MG/3ML NEB. SOL. [Concomitant]

REACTIONS (2)
  - Rash [None]
  - Skin hypopigmentation [None]

NARRATIVE: CASE EVENT DATE: 20200702
